FAERS Safety Report 6264193-6 (Version None)
Quarter: 2009Q3

REPORT INFORMATION
  Report Type: 
  Country: None (occurrence: None)
  Receive Date: 20090710
  Receipt Date: 20090629
  Transmission Date: 20100115
  Serious: Yes (Other)
  Sender: FDA-Public Use
  Company Number: PHHY2008GB27027

PATIENT
  Sex: Male

DRUGS (48)
  1. DEFEROXAMINE MESYLATE [Suspect]
     Dosage: 350 MG, QW
     Route: 042
  2. DEFEROXAMINE MESYLATE [Suspect]
     Dosage: 250 MG, QW2
  3. DEFEROXAMINE MESYLATE [Suspect]
     Dosage: 350 MG, QW3
  4. EPREX [Suspect]
     Dosage: 4000-21000 IU EVERY WEEK
     Route: 058
     Dates: end: 20090609
  5. ALFACALCIDOL [Concomitant]
     Indication: HYPERPARATHYROIDISM
     Dosage: 0.5 UG, ONCE/SINGLE
     Route: 048
  6. ALFACALCIDOL [Concomitant]
     Indication: VITAMIN SUPPLEMENTATION
     Dosage: .25 UG, ONCE/SINGLE
     Route: 048
  7. ALFACALCIDOL [Concomitant]
     Dosage: .25 UG, BID
  8. ALFACALCIDOL [Concomitant]
     Dosage: .5 BQ, UNK
  9. AMLODIPINE [Concomitant]
     Indication: HYPERTENSION
     Dosage: 5 MG, ONCE/SINGLE
     Route: 048
  10. ARANESP [Concomitant]
  11. ASPIRIN [Concomitant]
     Dosage: 150 MG, ONCE/SINGLE
     Route: 048
  12. ASPIRIN [Concomitant]
     Dosage: 75 MG, ONCE/SINGLE
     Route: 048
  13. ATENOLOL [Concomitant]
     Indication: HYPERTENSION
     Dosage: 25 MG, ONCE/SINGLE
     Route: 048
  14. ATENOLOL [Concomitant]
     Dosage: 25 MG, ONCE/SINGLE
     Route: 048
  15. ATENOLOL [Concomitant]
     Dosage: 50 MG, ONCE/SINGLE
     Route: 048
  16. ATORVASTATIN CALCIUM [Concomitant]
     Indication: BLOOD CHOLESTEROL INCREASED
     Dosage: 10 MG, ONCE/SINGLE
     Route: 048
  17. BENDROFLUAZIDE [Concomitant]
     Indication: HYPERTENSION
     Dosage: 2.5 MG, ONCE/SINGLE
     Route: 048
  18. CALCIUM ACETATE [Concomitant]
     Indication: BLOOD PHOSPHORUS INCREASED
     Dosage: 3 G, TID
  19. CALCIUM ACETATE [Concomitant]
     Dosage: 1 G, TID
  20. DOXAZOSIN MESYLATE [Concomitant]
     Indication: HYPERTENSION
     Dosage: 2 MG, ONCE/SINGLE
     Route: 048
  21. DOXAZOSIN MESYLATE [Concomitant]
     Dosage: 4 MG, ONCE/SINGLE
     Route: 048
  22. DOXAZOSIN MESYLATE [Concomitant]
     Dosage: 4 MG, BID
     Route: 048
  23. DOXAZOSIN MESYLATE [Concomitant]
     Dosage: 8 MG, ONCE/SINGLE
     Route: 048
  24. DOXAZOSIN MESYLATE [Concomitant]
     Dosage: 8 MG, BID
     Route: 048
  25. FERROUS SULFATE TAB [Concomitant]
     Indication: IRON DEFICIENCY
     Dosage: 200 MG, TID
     Route: 048
  26. FOLIC ACID [Concomitant]
     Indication: BLOOD FOLATE DECREASED
     Dosage: 5 MG, ONCE/SINGLE
  27. FOLIC ACID [Concomitant]
     Indication: RENAL FAILURE
  28. IRON [Concomitant]
     Indication: SERUM FERRITIN DECREASED
     Dosage: 200 MG, QW3
     Route: 042
  29. KETOVITE [Concomitant]
     Indication: RENAL FAILURE
     Dosage: 1 DAYS
     Route: 048
  30. LANSOPRAZOLE [Concomitant]
     Indication: GASTRITIS
     Dosage: 30 MG, ONCE/SINGLE
     Route: 048
  31. NEORECORMON ^BOEHRINGER MANNHEIM^ [Concomitant]
  32. PARACETAMOL [Concomitant]
     Indication: ANALGESIA
     Dosage: 1 G, TID
  33. QUININE SULPHATE [Concomitant]
     Dosage: 300 MG, TID
     Route: 048
  34. QUININE SULPHATE [Concomitant]
     Dosage: 300 MG, ONCE/SINGLE
  35. RED BLOOD CELLS [Concomitant]
     Indication: ANAEMIA
  36. INFLUENZA VACCINE [Concomitant]
     Dosage: UNK
     Dates: start: 20001011
  37. INFLUENZA VACCINE [Concomitant]
     Dosage: UNK
     Dates: start: 20011008
  38. INFLUENZA VACCINE [Concomitant]
     Dosage: UNK
     Dates: start: 20021118
  39. INFLUENZA VACCINE [Concomitant]
     Dosage: UNK
     Dates: start: 20041013
  40. PNEUMOCOCCAL VACCINE [Concomitant]
     Dosage: UNK
     Dates: start: 20010921
  41. HEPATITIS B VACCINE [Concomitant]
     Dosage: UNK
     Dates: start: 20011008
  42. HEPATITIS B VACCINE [Concomitant]
     Dosage: UNK
     Dates: start: 20011028
  43. HEPATITIS B VACCINE [Concomitant]
     Dosage: UNK
     Dates: start: 20021118
  44. HEPATITIS B VACCINE [Concomitant]
     Dosage: UNK
     Dates: start: 20041013
  45. HEMATIDE [Concomitant]
     Dosage: 0.05 MG/KG ONCE MONTHLY
     Route: 058
     Dates: start: 20060701
  46. CALCIUM CARBONATE [Concomitant]
  47. QUININE SULFATE [Concomitant]
  48. RANITIDINE [Concomitant]

REACTIONS (17)
  - ANTI-ERYTHROPOIETIN ANTIBODY POSITIVE [None]
  - APLASIA PURE RED CELL [None]
  - ASPIRATION BONE MARROW [None]
  - BIOPSY BONE MARROW [None]
  - BLOOD CREATININE INCREASED [None]
  - BLOOD GLUCOSE INCREASED [None]
  - CYTOMEGALOVIRUS INFECTION [None]
  - DIABETES MELLITUS [None]
  - ESCHERICHIA BACTERAEMIA [None]
  - FIBULA FRACTURE [None]
  - HAEMOGLOBIN DECREASED [None]
  - IRON OVERLOAD [None]
  - LEUKOPENIA [None]
  - PNEUMOCYSTIS JIROVECI PNEUMONIA [None]
  - RENAL TRANSPLANT [None]
  - THERAPEUTIC RESPONSE DECREASED [None]
  - TRANSPLANT REJECTION [None]
